FAERS Safety Report 4289337-7 (Version None)
Quarter: 2004Q1

REPORT INFORMATION
  Report Type: 
  Country: None (occurrence: None)
  Receive Date: 20040203
  Receipt Date: 20030814
  Transmission Date: 20041129
  Serious: Yes (Other)
  Sender: FDA-Public Use
  Company Number: 200322269BWH

PATIENT
  Age: 19 Year
  Sex: Female
  Weight: 56.6996 kg

DRUGS (8)
  1. AVELOX [Suspect]
     Indication: PHARYNGOLARYNGEAL PAIN
     Dosage: 400 MG, QD, ORAL
     Route: 048
     Dates: start: 20030724, end: 20030729
  2. AVELOX [Suspect]
     Indication: PYREXIA
     Dosage: 400 MG, QD, ORAL
     Route: 048
     Dates: start: 20030724, end: 20030729
  3. AVELOX [Suspect]
     Indication: SINUS DISORDER
     Dosage: 400 MG, QD, ORAL
     Route: 048
     Dates: start: 20030724, end: 20030729
  4. IBUPROFEN [Concomitant]
  5. TIGAN [Concomitant]
  6. RHINOCORT [Concomitant]
  7. ALLEGRA-D [Concomitant]
  8. TYLENOL (CAPLET) [Concomitant]

REACTIONS (2)
  - JAUNDICE [None]
  - OCULAR ICTERUS [None]
